FAERS Safety Report 7794827-6 (Version None)
Quarter: 2011Q3

REPORT INFORMATION
  Report Type: 
  Country: None (occurrence: None)
  Receive Date: 20110930
  Receipt Date: 20110915
  Transmission Date: 20111222
  Serious: Yes (Hospitalization, Other)
  Sender: FDA-Public Use
  Company Number: THQ2011A05662

PATIENT
  Age: 57 Year
  Sex: Male

DRUGS (5)
  1. ACTOS [Concomitant]
  2. PIOGLITAZONE HYDROCHLORIDE AND METFORMIN HYDROCHLORIDE [Suspect]
     Indication: DIABETES MELLITUS
     Dosage: PER ORAL
     Route: 048
     Dates: start: 20101201, end: 20110812
  3. DIAMICRON MR (GLICLAZIDE) [Concomitant]
  4. ACCUPRON (QUINAPRIL HYDROCHLORIDE) [Concomitant]
  5. GLUCOPHAGE [Concomitant]

REACTIONS (3)
  - FLATULENCE [None]
  - NEPHROPATHY [None]
  - RENAL FAILURE ACUTE [None]
